FAERS Safety Report 25433416 (Version 1)
Quarter: 2025Q2

REPORT INFORMATION
  Report Type: Spontaneous
  Country: US (occurrence: US)
  Receive Date: 20250613
  Receipt Date: 20250613
  Transmission Date: 20250717
  Serious: Yes (Other)
  Sender: MYLAN
  Company Number: US-MYLANLABS-2025M1048833

PATIENT
  Age: 39 Year
  Sex: Female

DRUGS (36)
  1. FENTANYL [Suspect]
     Active Substance: FENTANYL
     Indication: Pain
  2. FENTANYL [Suspect]
     Active Substance: FENTANYL
     Route: 042
  3. FENTANYL [Suspect]
     Active Substance: FENTANYL
     Route: 042
  4. FENTANYL [Suspect]
     Active Substance: FENTANYL
  5. METHADONE HYDROCHLORIDE [Suspect]
     Active Substance: METHADONE HYDROCHLORIDE
     Indication: Pain
  6. METHADONE HYDROCHLORIDE [Suspect]
     Active Substance: METHADONE HYDROCHLORIDE
     Route: 042
  7. METHADONE HYDROCHLORIDE [Suspect]
     Active Substance: METHADONE HYDROCHLORIDE
     Route: 042
  8. METHADONE HYDROCHLORIDE [Suspect]
     Active Substance: METHADONE HYDROCHLORIDE
  9. PROPOFOL [Suspect]
     Active Substance: PROPOFOL
     Indication: Pain
  10. PROPOFOL [Suspect]
     Active Substance: PROPOFOL
     Route: 065
  11. PROPOFOL [Suspect]
     Active Substance: PROPOFOL
     Route: 065
  12. PROPOFOL [Suspect]
     Active Substance: PROPOFOL
  13. HYDROMORPHONE [Suspect]
     Active Substance: HYDROMORPHONE
     Indication: Pain
  14. HYDROMORPHONE [Suspect]
     Active Substance: HYDROMORPHONE
     Route: 037
  15. HYDROMORPHONE [Suspect]
     Active Substance: HYDROMORPHONE
     Route: 037
  16. HYDROMORPHONE [Suspect]
     Active Substance: HYDROMORPHONE
  17. HYDROMORPHONE [Suspect]
     Active Substance: HYDROMORPHONE
     Indication: Pain
  18. HYDROMORPHONE [Suspect]
     Active Substance: HYDROMORPHONE
     Route: 048
  19. HYDROMORPHONE [Suspect]
     Active Substance: HYDROMORPHONE
     Route: 048
  20. HYDROMORPHONE [Suspect]
     Active Substance: HYDROMORPHONE
  21. KETAMINE [Concomitant]
     Active Substance: KETAMINE
     Indication: Pain
  22. KETAMINE [Concomitant]
     Active Substance: KETAMINE
  23. KETAMINE [Concomitant]
     Active Substance: KETAMINE
     Route: 042
  24. KETAMINE [Concomitant]
     Active Substance: KETAMINE
     Route: 042
  25. KETAMINE [Concomitant]
     Active Substance: KETAMINE
  26. KETAMINE [Concomitant]
     Active Substance: KETAMINE
  27. KETAMINE [Concomitant]
     Active Substance: KETAMINE
     Route: 042
  28. KETAMINE [Concomitant]
     Active Substance: KETAMINE
     Route: 042
  29. Chlordiazepoxide hydrochloride;Clidinium [Concomitant]
     Indication: Drug therapy
     Dosage: UNK, QID
  30. Chlordiazepoxide hydrochloride;Clidinium [Concomitant]
     Dosage: UNK, QID
     Route: 065
  31. Chlordiazepoxide hydrochloride;Clidinium [Concomitant]
     Dosage: UNK, QID
     Route: 065
  32. Chlordiazepoxide hydrochloride;Clidinium [Concomitant]
     Dosage: UNK, QID
  33. ZOLPIDEM [Concomitant]
     Active Substance: ZOLPIDEM TARTRATE
     Indication: Drug therapy
  34. ZOLPIDEM [Concomitant]
     Active Substance: ZOLPIDEM TARTRATE
     Route: 065
  35. ZOLPIDEM [Concomitant]
     Active Substance: ZOLPIDEM TARTRATE
     Route: 065
  36. ZOLPIDEM [Concomitant]
     Active Substance: ZOLPIDEM TARTRATE

REACTIONS (1)
  - Drug ineffective [Unknown]
